FAERS Safety Report 4890573-7 (Version None)
Quarter: 2006Q1

REPORT INFORMATION
  Report Type: 
  Country: None (occurrence: None)
  Receive Date: 20060123
  Receipt Date: 20060106
  Transmission Date: 20060701
  Serious: Yes (Death)
  Sender: FDA-Public Use
  Company Number: US200601001013

PATIENT
  Age: 56 Year
  Sex: Female

DRUGS (1)
  1. XIGRIS [Suspect]
     Indication: UROSEPSIS
     Dates: start: 20051222

REACTIONS (1)
  - MULTI-ORGAN FAILURE [None]
